FAERS Safety Report 7421770-4 (Version None)
Quarter: 2011Q2

REPORT INFORMATION
  Report Type: 
  Country: None (occurrence: None)
  Receive Date: 20110418
  Receipt Date: 20110408
  Transmission Date: 20111010
  Serious: Yes (Hospitalization)
  Sender: FDA-Public Use
  Company Number: US-BAXTER-2011BH008629

PATIENT
  Age: 60 Year
  Sex: Female

DRUGS (2)
  1. DIANEAL [Suspect]
     Route: 033
     Dates: start: 20090101
  2. DIANEAL [Suspect]
     Indication: PERITONEAL DIALYSIS
     Route: 033
     Dates: start: 20090101

REACTIONS (9)
  - PULMONARY OEDEMA [None]
  - FATIGUE [None]
  - DIARRHOEA [None]
  - VIRAL INFECTION [None]
  - DECREASED APPETITE [None]
  - CHEST PAIN [None]
  - DEHYDRATION [None]
  - INFLUENZA [None]
  - CARDIAC DISORDER [None]
